FAERS Safety Report 11464952 (Version 2)
Quarter: 2015Q3

REPORT INFORMATION
  Report Type: Report from Study
  Country: US (occurrence: US)
  Receive Date: 20150907
  Receipt Date: 20150910
  Transmission Date: 20151125
  Serious: Yes (Other)
  Sender: FDA-Public Use
  Company Number: US-AMGEN-USASL2015090699

PATIENT
  Age: 76 Year
  Sex: Male

DRUGS (1)
  1. ENBREL [Suspect]
     Active Substance: ETANERCEPT
     Indication: RHEUMATOID ARTHRITIS
     Dosage: 50 MG, QWK
     Route: 065
     Dates: start: 201507

REACTIONS (5)
  - Intraocular lens implant [Unknown]
  - Arthropathy [Unknown]
  - Neuropathy peripheral [Unknown]
  - Prerenal failure [Unknown]
  - Headache [Unknown]

NARRATIVE: CASE EVENT DATE: 2015
